FAERS Safety Report 8518374-9 (Version None)
Quarter: 2012Q3

REPORT INFORMATION
  Report Type: 
  Country: None (occurrence: None)
  Receive Date: 20120718
  Receipt Date: 20120709
  Transmission Date: 20120928
  Serious: Yes (Hospitalization, Other)
  Sender: FDA-Public Use
  Company Number: AU-ASTRAZENECA-2012SE46607

PATIENT
  Age: 25 Year
  Sex: Female

DRUGS (5)
  1. SEROQUEL [Suspect]
     Route: 048
  2. FLUOXETINE HCL [Concomitant]
  3. SEROQUEL [Suspect]
     Dosage: OVERDOSED WITH 3000MG
     Route: 048
     Dates: start: 20110101
  4. SEROQUEL [Suspect]
     Route: 048
  5. SEROQUEL [Suspect]
     Dosage: 400 MG WITH WINE AND CHAMPAGNE
     Route: 048
     Dates: start: 20120601

REACTIONS (8)
  - BLOOD CREATININE INCREASED [None]
  - RASH MACULAR [None]
  - HYPOAESTHESIA [None]
  - GAIT DISTURBANCE [None]
  - INTENTIONAL DRUG MISUSE [None]
  - OVERDOSE [None]
  - PYREXIA [None]
  - LIVER FUNCTION TEST ABNORMAL [None]
